FAERS Safety Report 26058829 (Version 1)
Quarter: 2025Q4

REPORT INFORMATION
  Report Type: Spontaneous
  Country: US (occurrence: None)
  Receive Date: 20251117
  Receipt Date: 20251117
  Transmission Date: 20260117
  Serious: Yes (Other)
  Sender: FDA-CTU
  Company Number: None

PATIENT
  Age: 46 Year
  Sex: Female

DRUGS (2)
  1. CYANOCOBALAMIN\NALTREXONE\TOPIRAMATE [Suspect]
     Active Substance: CYANOCOBALAMIN\NALTREXONE\TOPIRAMATE
     Indication: Weight decreased
     Dosage: TWICE A DAY ORAL
     Route: 048
     Dates: start: 20250902, end: 20251114
  2. BUPROPION [Suspect]
     Active Substance: BUPROPION
     Dates: start: 20250902, end: 20251114

REACTIONS (4)
  - Reaction to azo-dyes [None]
  - Skin disorder [None]
  - Headache [None]
  - Hypersensitivity [None]

NARRATIVE: CASE EVENT DATE: 20251114
